FAERS Safety Report 24777627 (Version 1)
Quarter: 2024Q4

REPORT INFORMATION
  Report Type: Spontaneous
  Country: CA (occurrence: CA)
  Receive Date: 20241226
  Receipt Date: 20241226
  Transmission Date: 20250115
  Serious: Yes (Death)
  Sender: ROCHE
  Company Number: CA-ROCHE-10000161657

PATIENT
  Age: 75 Year
  Sex: Female
  Weight: 54 kg

DRUGS (2)
  1. OBINUTUZUMAB [Suspect]
     Active Substance: OBINUTUZUMAB
     Indication: Chronic lymphocytic leukaemia
     Route: 042
     Dates: start: 20240606, end: 20241008
  2. VENETOCLAX [Concomitant]
     Active Substance: VENETOCLAX
     Indication: Chronic lymphocytic leukaemia
     Route: 048
     Dates: start: 20241008, end: 20241012

REACTIONS (1)
  - Progressive multifocal leukoencephalopathy [Fatal]

NARRATIVE: CASE EVENT DATE: 20241012
